FAERS Safety Report 5078591-X (Version None)
Quarter: 2006Q3

REPORT INFORMATION
  Report Type: 
  Country: None (occurrence: None)
  Receive Date: 20060809
  Receipt Date: 20060809
  Transmission Date: 20061208
  Serious: Yes (Life-Threatening, Hospitalization, Other)
  Sender: FDA-Public Use
  Company Number: None

PATIENT
  Age: 39 Year
  Sex: Female
  Weight: 61.2356 kg

DRUGS (2)
  1. EFFEXOR XR [Suspect]
     Indication: ANXIETY
     Dosage: 37.5 MAINTENANCE DOSE 1X DAILY WAS ON HIGHER DOSE FOR 1 YRS
  2. EFFEXOR XR [Suspect]
     Indication: PANIC ATTACK
     Dosage: 37.5 MAINTENANCE DOSE 1X DAILY WAS ON HIGHER DOSE FOR 1 YRS

REACTIONS (17)
  - BALANCE DISORDER [None]
  - BEDRIDDEN [None]
  - CONVULSION [None]
  - DEPRESSION [None]
  - DRUG DEPENDENCE [None]
  - DRUG DOSE OMISSION [None]
  - DRUG WITHDRAWAL SYNDROME [None]
  - INFLUENZA LIKE ILLNESS [None]
  - LOSS OF EMPLOYMENT [None]
  - MALAISE [None]
  - MIGRAINE [None]
  - MOVEMENT DISORDER [None]
  - NERVOUS SYSTEM DISORDER [None]
  - PAIN [None]
  - PHOTOPHOBIA [None]
  - SUICIDAL IDEATION [None]
  - WEIGHT DECREASED [None]
